FAERS Safety Report 10590657 (Version 1)
Quarter: 2014Q4

REPORT INFORMATION
  Report Type: Report from Study
  Country: BR (occurrence: BR)
  Receive Date: 20141118
  Receipt Date: 20141118
  Transmission Date: 20150529
  Serious: Yes (Death, Hospitalization)
  Sender: FDA-Public Use
  Company Number: BR-BAYER-2014-164310

PATIENT
  Sex: Male
  Weight: 70 kg

DRUGS (1)
  1. NEXAVAR [Suspect]
     Active Substance: SORAFENIB
     Indication: HEPATIC CANCER
     Dosage: 1 DF, BID
     Route: 048
     Dates: start: 201401, end: 201402

REACTIONS (7)
  - Hepatic cancer [Fatal]
  - Asthenia [Not Recovered/Not Resolved]
  - Oesophageal ulcer [Not Recovered/Not Resolved]
  - Renal disorder [Not Recovered/Not Resolved]
  - Drug ineffective [None]
  - Melaena [Not Recovered/Not Resolved]
  - Haematemesis [None]

NARRATIVE: CASE EVENT DATE: 201402
